FAERS Safety Report 15438388 (Version 1)
Quarter: 2018Q3

REPORT INFORMATION
  Report Type: Spontaneous
  Country: DE (occurrence: DE)
  Receive Date: 20180928
  Receipt Date: 20180928
  Transmission Date: 20181010
  Serious: Yes (Hospitalization)
  Sender: FDA-Public Use
  Company Number: DE-DRREDDYS-GER/GER/18/0104234

PATIENT
  Age: 66 Year
  Sex: Female
  Weight: 75 kg

DRUGS (24)
  1. PACLITAXEL. [Suspect]
     Active Substance: PACLITAXEL
     Indication: BREAST CANCER
     Dosage: DAILY DOSE: 80 MG/M2 MILLIGRAM(S)/SQ. METER EVERY WEEK
     Route: 042
     Dates: start: 20120814, end: 20120814
  2. VOMEX A [Concomitant]
     Active Substance: DIMENHYDRINATE
     Indication: PRODUCT USED FOR UNKNOWN INDICATION
     Dates: start: 20120530, end: 20120601
  3. PANTOZOL [Concomitant]
     Active Substance: PANTOPRAZOLE SODIUM
     Indication: PRODUCT USED FOR UNKNOWN INDICATION
     Dates: start: 20120713, end: 20120717
  4. DOCETAXEL. [Suspect]
     Active Substance: DOCETAXEL
     Dosage: DAILY DOSE: 133.5 MG MILLIGRAM(S) EVERY 3 WEEK
     Route: 042
     Dates: start: 20120523
  5. HERCEPTIN [Suspect]
     Active Substance: TRASTUZUMAB
     Dosage: DATE OF LAST DOSE PRIOR TO EVENT: 22/MAY/2012
     Route: 042
     Dates: start: 20120522
  6. HERCEPTIN [Suspect]
     Active Substance: TRASTUZUMAB
     Dosage: DAILY DOSE: 8 MG/KG MILLIGRAM(S)/KILOGRAM EVERY 3 WEEK
     Route: 042
     Dates: start: 20120814
  7. BISOPROLOL [Concomitant]
     Active Substance: BISOPROLOL
     Indication: PRODUCT USED FOR UNKNOWN INDICATION
     Dates: start: 1990
  8. DOCETAXEL. [Suspect]
     Active Substance: DOCETAXEL
     Dosage: DATE OF LAST DOSE PRIOR TO EVENT: 22/MAY/2012
     Route: 042
     Dates: start: 20120522, end: 20120522
  9. LEVOTHYROXINE SODIUM. [Concomitant]
     Active Substance: LEVOTHYROXINE SODIUM
     Indication: PRODUCT USED FOR UNKNOWN INDICATION
     Dosage: DAILY DOSE: 125 MG MILLIGRAM(S) EVERY DAY
     Dates: start: 2005
  10. LOPEDIUM [Concomitant]
     Active Substance: LOPERAMIDE
     Indication: PRODUCT USED FOR UNKNOWN INDICATION
     Dates: start: 20120601, end: 20120602
  11. DIOVAN [Concomitant]
     Active Substance: VALSARTAN
     Indication: PRODUCT USED FOR UNKNOWN INDICATION
     Dosage: DAILY DOSE: 80 MG MILLIGRAM(S) EVERY DAY
     Dates: start: 1990
  12. CARBOPLATIN. [Suspect]
     Active Substance: CARBOPLATIN
     Indication: BREAST CANCER
     Dosage: DATE OF LAST DOSE PRIOR TO EVENT: 03/JUL/2012 DATE OF LAST DOSE PRIOR TO EVENT: 22/MAY/2012
     Dates: start: 20120522, end: 20120713
  13. BLINDED THERAPY [Suspect]
     Active Substance: INVESTIGATIONAL PRODUCT
     Route: 042
     Dates: start: 20120814, end: 20120814
  14. MOXONIDINE [Concomitant]
     Active Substance: MOXONIDINE
     Indication: PRODUCT USED FOR UNKNOWN INDICATION
  15. CORIFEO [Concomitant]
     Indication: PRODUCT USED FOR UNKNOWN INDICATION
  16. LOPEDIUM [Concomitant]
     Active Substance: LOPERAMIDE
     Dates: start: 20120714, end: 20120714
  17. AMLODIPIN [Concomitant]
     Active Substance: AMLODIPINE BESYLATE
     Indication: PRODUCT USED FOR UNKNOWN INDICATION
     Dosage: DAILY DOSE: 5 MG MILLIGRAM(S) EVERY DAY
     Dates: start: 1990
  18. BLINDED THERAPY [Suspect]
     Active Substance: INVESTIGATIONAL PRODUCT
     Indication: BREAST CANCER
     Dosage: DATE OF LAST DOSE PRIOR TO EVENT: 22/MAY/2012
     Route: 042
     Dates: start: 20120522, end: 20120713
  19. DOCETAXEL. [Suspect]
     Active Substance: DOCETAXEL
     Dosage: DOSE REDUCED
     Route: 042
     Dates: start: 20120612
  20. HERCEPTIN [Suspect]
     Active Substance: TRASTUZUMAB
     Indication: BREAST CANCER
     Dosage: DATE OF LAST DOSE PRIOR TO SAE: 03/JUL/2012
     Route: 042
     Dates: start: 20120522, end: 20120713
  21. METOPROLOL. [Concomitant]
     Active Substance: METOPROLOL
     Indication: PRODUCT USED FOR UNKNOWN INDICATION
  22. VOMEX A [Concomitant]
     Active Substance: DIMENHYDRINATE
     Dosage: DAILY DOSE: 30 ML MILLILITRE(S) EVERY DAY
     Dates: start: 20120713, end: 20120717
  23. PANTOZOL [Concomitant]
     Active Substance: PANTOPRAZOLE SODIUM
     Indication: PRODUCT USED FOR UNKNOWN INDICATION
     Dates: start: 20120713, end: 20120717
  24. DOCETAXEL. [Suspect]
     Active Substance: DOCETAXEL
     Indication: BREAST CANCER
     Dosage: DATE OF LAST DOSE PRIOR TO SAE: 03/JUL/2012
     Route: 042
     Dates: start: 20120522, end: 20120713

REACTIONS (3)
  - Hypersensitivity [Recovered/Resolved]
  - Fatigue [Recovered/Resolved]
  - Leukopenia [Recovered/Resolved]

NARRATIVE: CASE EVENT DATE: 20120530
